FAERS Safety Report 22935635 (Version 5)
Quarter: 2025Q3

REPORT INFORMATION
  Report Type: Report from Study
  Country: US (occurrence: US)
  Receive Date: 20230912
  Receipt Date: 20250714
  Transmission Date: 20251020
  Serious: No
  Sender: TAKEDA
  Company Number: US-TAKEDA-2023TUS088242

PATIENT
  Sex: Male

DRUGS (9)
  1. PONATINIB [Suspect]
     Active Substance: PONATINIB
     Indication: Acute lymphocytic leukaemia
     Dosage: 30 MILLIGRAM, QD
  2. PONATINIB [Suspect]
     Active Substance: PONATINIB
     Dosage: 30 MILLIGRAM, QD
  3. PONATINIB [Suspect]
     Active Substance: PONATINIB
     Dosage: 15 MILLIGRAM, QD
  4. PONATINIB [Suspect]
     Active Substance: PONATINIB
     Dosage: 10 MILLIGRAM, QD
  5. ALLOPURINOL [Concomitant]
     Active Substance: ALLOPURINOL
  6. METOPROLOL TARTRATE [Concomitant]
     Active Substance: METOPROLOL TARTRATE
  7. ACYCLOVIR [Concomitant]
     Active Substance: ACYCLOVIR
  8. VORICONAZOLE [Concomitant]
     Active Substance: VORICONAZOLE
  9. TACROLIMUS [Concomitant]
     Active Substance: TACROLIMUS

REACTIONS (4)
  - No adverse event [Unknown]
  - Product use issue [Unknown]
  - Off label use [Unknown]
  - Product dose omission issue [Unknown]
